FAERS Safety Report 9450169 (Version 1)
Quarter: 2013Q3

REPORT INFORMATION
  Report Type: Spontaneous
  Country: US (occurrence: US)
  Receive Date: 20130809
  Receipt Date: 20130809
  Transmission Date: 20140515
  Serious: No
  Sender: FDA-Public Use
  Company Number: US-GLAXOSMITHKLINE-A1025705A

PATIENT
  Age: 62 Year
  Sex: Female

DRUGS (4)
  1. REQUIP XL [Suspect]
     Indication: RESTLESS LEGS SYNDROME
     Dosage: 8MG TWICE PER DAY
     Route: 048
     Dates: start: 2007
  2. ROPINIROLE [Suspect]
     Indication: RESTLESS LEGS SYNDROME
     Dosage: 2MG FOUR TIMES PER DAY
     Route: 048
     Dates: start: 2007
  3. THYROID MEDICATION [Concomitant]
  4. ASACOL [Concomitant]

REACTIONS (4)
  - Somnolence [Unknown]
  - Somnolence [Unknown]
  - Dizziness [Unknown]
  - Dizziness [Unknown]
